FAERS Safety Report 7611781-8 (Version None)
Quarter: 2011Q3

REPORT INFORMATION
  Report Type: 
  Country: None (occurrence: None)
  Receive Date: 20110715
  Receipt Date: 20110711
  Transmission Date: 20111222
  Serious: Yes (Death, Hospitalization)
  Sender: FDA-Public Use
  Company Number: US-SANOFI-AVENTIS-2011SA043476

PATIENT
  Age: 65 Year
  Sex: Female

DRUGS (4)
  1. ERBITUX [Suspect]
     Indication: ANAL CANCER
     Route: 065
     Dates: start: 20110509
  2. CISPLATIN [Suspect]
     Indication: ANAL CANCER
     Route: 065
     Dates: start: 20110509, end: 20110613
  3. FUROSEMIDE [Suspect]
     Route: 048
  4. FLUOROURACIL [Suspect]
     Indication: ANAL CANCER
     Route: 065
     Dates: start: 20110509, end: 20110617

REACTIONS (3)
  - HYPOKALAEMIA [None]
  - ASPIRATION [None]
  - DEHYDRATION [None]
